FAERS Safety Report 4724585-0 (Version None)
Quarter: 2005Q3

REPORT INFORMATION
  Report Type: 
  Country: None (occurrence: None)
  Receive Date: 20050721
  Receipt Date: 20050613
  Transmission Date: 20060218
  Serious: No
  Sender: FDA-Public Use
  Company Number: 2005SP001387

PATIENT
  Age: 43 Year
  Sex: Male

DRUGS (4)
  1. LUNESTA [Suspect]
     Dosage: 3 MG, ORAL; 2 MG, ORAL
     Route: 048
     Dates: start: 20050101, end: 20050101
  2. LUNESTA [Suspect]
     Dosage: 3 MG, ORAL; 2 MG, ORAL
     Route: 048
     Dates: start: 20050101
  3. LEXAPRO [Concomitant]
  4. KLONOPIN [Concomitant]

REACTIONS (2)
  - DRUG INEFFECTIVE [None]
  - MIDDLE INSOMNIA [None]
